FAERS Safety Report 16084165 (Version 3)
Quarter: 2021Q1

REPORT INFORMATION
  Report Type: Spontaneous
  Country: US (occurrence: US)
  Receive Date: 20190318
  Receipt Date: 20210104
  Transmission Date: 20210419
  Serious: Yes (Other)
  Sender: FDA-Public Use
  Company Number: US-PFIZER INC-2018419178

PATIENT
  Age: 67 Year
  Sex: Female
  Weight: 62.5 kg

DRUGS (2)
  1. CELEBREX [Suspect]
     Active Substance: CELECOXIB
     Indication: ARTHRITIS
     Dosage: 200 MG, 1X/DAY
     Route: 048
  2. LOVASTATIN. [Concomitant]
     Active Substance: LOVASTATIN
     Indication: BLOOD CHOLESTEROL INCREASED
     Dosage: 20 MG, 2X/DAY

REACTIONS (4)
  - Arthritis [Not Recovered/Not Resolved]
  - Hypertension [Not Recovered/Not Resolved]
  - Pain [Unknown]
  - Sensitivity to weather change [Unknown]
